FAERS Safety Report 6399093-4 (Version None)
Quarter: 2009Q4

REPORT INFORMATION
  Report Type: 
  Country: None (occurrence: None)
  Receive Date: 20091008
  Receipt Date: 20090929
  Transmission Date: 20100525
  Serious: Yes (Hospitalization)
  Sender: FDA-Public Use
  Company Number: 2009SP002560

PATIENT
  Age: 74 Year
  Sex: Female

DRUGS (6)
  1. LUNESTA [Suspect]
     Indication: INSOMNIA
     Dosage: 3 MG; BID; ORAL, 3 MG; BID; ORAL
     Route: 048
     Dates: start: 20090713, end: 20090901
  2. LUNESTA [Suspect]
     Indication: INSOMNIA
     Dosage: 3 MG; BID; ORAL, 3 MG; BID; ORAL
     Route: 048
     Dates: start: 20090909
  3. THYROID TAB [Concomitant]
  4. EFFEXOR [Concomitant]
  5. MEVACOR [Concomitant]
  6. RESTORIL [Concomitant]

REACTIONS (3)
  - DRUG INEFFECTIVE [None]
  - FALL [None]
  - HIP FRACTURE [None]
